FAERS Safety Report 8304976-1 (Version None)
Quarter: 2012Q2

REPORT INFORMATION
  Report Type: 
  Country: None (occurrence: None)
  Receive Date: 20120423
  Receipt Date: 20120415
  Transmission Date: 20120825
  Serious: No
  Sender: FDA-Public Use
  Company Number: US-BAYER-2012-038742

PATIENT

DRUGS (4)
  1. ALEVE (CAPLET) [Suspect]
     Route: 048
  2. PERCOCET [Concomitant]
  3. IBUPROFEN (ADVIL) [Concomitant]
  4. ARIMIDEX [Concomitant]

REACTIONS (1)
  - PAIN [None]
